FAERS Safety Report 9069114 (Version 2)
Quarter: 2013Q1

REPORT INFORMATION
  Report Type: Spontaneous
  Country: DE (occurrence: None)
  Receive Date: 20130122
  Receipt Date: 20130128
  Transmission Date: 20140127
  Serious: Yes (Hospitalization)
  Sender: FDA-Public Use
  Company Number: 1546184

PATIENT
  Age: 64 Year
  Sex: Female
  Weight: 72 kg

DRUGS (1)
  1. OXALIPLATIN [Suspect]
     Indication: COLORECTAL CANCER
     Dosage: 150 MG MILLIGRAM(S) UNKNOWN, INTRAVENOUS
     Route: 042
     Dates: start: 20121029

REACTIONS (3)
  - Chills [None]
  - Pallor [None]
  - Tachycardia [None]
